FAERS Safety Report 7796155-1 (Version None)
Quarter: 2011Q4

REPORT INFORMATION
  Report Type: 
  Country: None (occurrence: None)
  Receive Date: 20111004
  Receipt Date: 20110928
  Transmission Date: 20120403
  Serious: Yes (Hospitalization)
  Sender: FDA-Public Use
  Company Number: US-PFIZER INC-2011231716

PATIENT
  Sex: Female
  Weight: 46.259 kg

DRUGS (1)
  1. LYRICA [Suspect]
     Indication: PAIN
     Dosage: 75 MG, 2X/DAY
     Dates: start: 20110801, end: 20110921

REACTIONS (6)
  - INCREASED APPETITE [None]
  - DIZZINESS [None]
  - OVERDOSE [None]
  - DYSARTHRIA [None]
  - GAIT DISTURBANCE [None]
  - AMNESIA [None]
